FAERS Safety Report 4531856-X (Version None)
Quarter: 2004Q4

REPORT INFORMATION
  Report Type: 
  Country: None (occurrence: None)
  Receive Date: 20041216
  Receipt Date: 20041213
  Transmission Date: 20050328
  Serious: Yes (Life-Threatening, Other)
  Sender: FDA-Public Use
  Company Number: HQWYE835201JUL04

PATIENT
  Age: 29 Year
  Weight: 90.8 kg

DRUGS (4)
  1. WYMOX [Suspect]
     Indication: SINUSITIS
     Dosage: ORA
     Route: 048
  2. NEXIM (ESOMEPRAZOLE0 [Concomitant]
  3. ADVAIR (FLUTCASONE PROPIONATE/SALMETEROL XINAFOATE) [Concomitant]
  4. NASONEX (MOMETASONE FUROATE0 [Concomitant]

REACTIONS (1)
  - SERUM SICKNESS [None]
